FAERS Safety Report 20370002 (Version 1)
Quarter: 2022Q1

REPORT INFORMATION
  Report Type: Spontaneous
  Country: US (occurrence: US)
  Receive Date: 20220124
  Receipt Date: 20220124
  Transmission Date: 20220424
  Serious: Yes (Hospitalization)
  Sender: FDA-Public Use
  Company Number: US-MYLANLABS-2022M1005832

PATIENT
  Age: 54 Year
  Sex: Female

DRUGS (2)
  1. ZOLPIDEM [Suspect]
     Active Substance: ZOLPIDEM TARTRATE
     Indication: Insomnia
     Dosage: INITIAL DOSAGE NOT STATED
     Route: 065
  2. ZOLPIDEM [Suspect]
     Active Substance: ZOLPIDEM TARTRATE
     Dosage: UNK, QD (90-100 MG)
     Route: 065

REACTIONS (6)
  - Intentional product misuse [Recovered/Resolved]
  - Inappropriate schedule of product discontinuation [Unknown]
  - Drug dependence [Recovered/Resolved]
  - Withdrawal syndrome [Recovered/Resolved]
  - Drug withdrawal convulsions [Recovered/Resolved]
  - Overdose [Recovered/Resolved]
